FAERS Safety Report 22221385 (Version 1)
Quarter: 2023Q2

REPORT INFORMATION
  Report Type: Spontaneous
  Country: PL (occurrence: PL)
  Receive Date: 20230418
  Receipt Date: 20230418
  Transmission Date: 20230721
  Serious: Yes (Other)
  Sender: FDA-Public Use
  Company Number: PL-GILEAD-2023-0620936

PATIENT
  Age: 50 Year
  Sex: Male

DRUGS (7)
  1. RIBAVIRIN [Suspect]
     Active Substance: RIBAVIRIN
     Indication: Chronic hepatitis C
     Dosage: UNK
     Route: 065
     Dates: start: 201906
  2. EPCLUSA [Suspect]
     Active Substance: SOFOSBUVIR\VELPATASVIR
     Indication: Chronic hepatitis C
     Dosage: UNK
     Route: 065
     Dates: start: 201906
  3. METHOTREXATE [Concomitant]
     Active Substance: METHOTREXATE
  4. NYSTATIN [Concomitant]
     Active Substance: NYSTATIN
  5. VALCYTE [Concomitant]
     Active Substance: VALGANCICLOVIR HYDROCHLORIDE
  6. PROGRAF [Concomitant]
     Active Substance: TACROLIMUS
  7. PREDNISONE ACETATE [Concomitant]
     Active Substance: PREDNISONE ACETATE

REACTIONS (4)
  - Hepatocellular carcinoma [Unknown]
  - Drug ineffective [Not Recovered/Not Resolved]
  - Hepatitis C RNA positive [Not Recovered/Not Resolved]
  - Liver transplant [Recovered/Resolved]

NARRATIVE: CASE EVENT DATE: 20191001
